FAERS Safety Report 14806300 (Version 1)
Quarter: 2018Q2

REPORT INFORMATION
  Report Type: Spontaneous
  Country: FR (occurrence: FR)
  Receive Date: 20180425
  Receipt Date: 20180425
  Transmission Date: 20180711
  Serious: Yes (Life-Threatening, Hospitalization)
  Sender: FDA-Public Use
  Company Number: FR-PFIZER INC-2018168800

PATIENT
  Age: 42 Year
  Sex: Male

DRUGS (7)
  1. ISOFUNDINE [Suspect]
     Active Substance: ACETIC ACID\CALCIUM CATION\MAGNESIUM CATION\MALIC ACID\POTASSIUM CATION\SODIUM CHLORIDE
     Indication: HYPOVOLAEMIA
     Dosage: UNK
     Route: 041
     Dates: start: 20171113, end: 20171113
  2. KETAMINE [Suspect]
     Active Substance: KETAMINE
     Indication: ANAESTHESIA
     Dosage: 40 MG, UNK
     Route: 042
     Dates: start: 20171113, end: 20171113
  3. ATRACURIUM BESILATE [Suspect]
     Active Substance: ATRACURIUM BESYLATE
     Indication: GENERAL ANAESTHESIA
     Dosage: 40 MG, UNK
     Route: 042
     Dates: start: 20171113, end: 20171113
  4. PROPOFOL LIPURO [Suspect]
     Active Substance: PROPOFOL
     Indication: GENERAL ANAESTHESIA
     Dosage: 300 MG, UNK
     Route: 042
     Dates: start: 20171113, end: 20171113
  5. SUFENTANIL [Suspect]
     Active Substance: SUFENTANIL
     Indication: GENERAL ANAESTHESIA
     Dosage: 20 UG, UNK
     Route: 042
     Dates: start: 20171113, end: 20171113
  6. VANCOMYCINE SANDOZ [Suspect]
     Active Substance: VANCOMYCIN
     Indication: ANTIBIOTIC PROPHYLAXIS
     Dosage: 2 G, UNK
     Route: 042
     Dates: start: 20171113, end: 20171113
  7. DEXAMETHASONE MYLAN [Suspect]
     Active Substance: DEXAMETHASONE
     Indication: GENERAL ANAESTHESIA
     Dosage: 8 MG, UNK
     Route: 042
     Dates: start: 20171113, end: 20171113

REACTIONS (1)
  - Type I hypersensitivity [Recovered/Resolved]

NARRATIVE: CASE EVENT DATE: 20171113
